FAERS Safety Report 22524889 (Version 1)
Quarter: 2023Q2

REPORT INFORMATION
  Report Type: Spontaneous
  Country: US (occurrence: US)
  Receive Date: 20230606
  Receipt Date: 20230606
  Transmission Date: 20230722
  Serious: No
  Sender: FDA-Public Use
  Company Number: US-BRISTOL-MYERS SQUIBB COMPANY-2023-079421

PATIENT
  Age: 70 Year
  Sex: Female
  Weight: 72.57 kg

DRUGS (1)
  1. REVLIMID [Suspect]
     Active Substance: LENALIDOMIDE
     Indication: Plasma cell myeloma
     Dosage: FREQUENCY - 3 WKS ON,1 WK OFF
     Route: 048
     Dates: end: 20230605

REACTIONS (1)
  - Adverse event [Unknown]
